FAERS Safety Report 5120066-3 (Version None)
Quarter: 2006Q3

REPORT INFORMATION
  Report Type: 
  Country: None (occurrence: None)
  Receive Date: 20060929
  Receipt Date: 20060914
  Transmission Date: 20061208
  Serious: Yes (Other)
  Sender: FDA-Public Use
  Company Number: S06-FRA-03821-01

PATIENT
  Age: 53 Year
  Sex: Male

DRUGS (1)
  1. CITALOPRAM HYDROBROMIDE [Suspect]
     Indication: PANIC ATTACK
     Dates: start: 20040101, end: 20060401

REACTIONS (1)
  - GLIOBLASTOMA [None]
